FAERS Safety Report 5716622-1 (Version None)
Quarter: 2008Q2

REPORT INFORMATION
  Report Type: 
  Country: None (occurrence: None)
  Receive Date: 20080424
  Receipt Date: 20080415
  Transmission Date: 20081010
  Serious: Yes (Hospitalization)
  Sender: FDA-Public Use
  Company Number: US-KINGPHARMUSA00001-K200800439

PATIENT

DRUGS (11)
  1. ALTACE [Suspect]
     Indication: HYPERTENSION
     Dosage: 15 MG, QD
     Route: 048
     Dates: start: 20071204, end: 20071211
  2. MARAVIROC [Suspect]
     Indication: HIV INFECTION
     Dosage: 150 MG, BID
     Route: 048
     Dates: start: 20071106
  3. RALTEGRAVIR [Suspect]
     Indication: HIV INFECTION
     Dosage: 400 MG, BID
     Route: 048
     Dates: start: 20071106
  4. NORVASC [Suspect]
     Indication: HYPERTENSION
     Dosage: 5 MG, BID
     Route: 048
     Dates: start: 20071211
  5. BLOPRESS [Suspect]
     Indication: HYPERTENSION
     Dosage: 16 MG, QD
     Route: 048
     Dates: start: 20071211
  6. ACTOS [Concomitant]
     Dosage: 15 MG, UNK
     Route: 048
     Dates: start: 20070911
  7. METFORMIN HCL [Concomitant]
     Route: 048
     Dates: start: 20060117
  8. EPIVIR [Concomitant]
     Dosage: 300 MG, UNK
     Route: 048
     Dates: start: 20071106
  9. NORVIR [Concomitant]
     Dosage: 200 MG, UNK
     Route: 048
     Dates: start: 20071106
  10. ETRAVIRINE [Concomitant]
     Dosage: 400 MG, UNK
     Route: 048
     Dates: start: 20071106
  11. DARUNAVIR (TMC-114) [Concomitant]
     Dosage: 1200 MG, UNK
     Route: 048
     Dates: start: 20071106

REACTIONS (2)
  - DRUG INTERACTION [None]
  - HYPERTENSIVE CRISIS [None]
